FAERS Safety Report 7762859-X (Version None)
Quarter: 2011Q3

REPORT INFORMATION
  Report Type: 
  Country: None (occurrence: None)
  Receive Date: 20110825
  Receipt Date: 20110627
  Transmission Date: 20111222
  Serious: No
  Sender: FDA-Public Use
  Company Number: 331096

PATIENT
  Sex: Female

DRUGS (1)
  1. VICTOZA [Suspect]
     Indication: TYPE 2 DIABETES MELLITUS
     Dosage: UNK, SUBCUTANEOUS
     Route: 058
     Dates: start: 20110301

REACTIONS (5)
  - DYSPEPSIA [None]
  - NAUSEA [None]
  - ERUCTATION [None]
  - WEIGHT DECREASED [None]
  - ABDOMINAL PAIN UPPER [None]
